FAERS Safety Report 8530444-8 (Version None)
Quarter: 2012Q3

REPORT INFORMATION
  Report Type: 
  Country: None (occurrence: None)
  Receive Date: 20120723
  Receipt Date: 20120711
  Transmission Date: 20120928
  Serious: Yes (Other)
  Sender: FDA-Public Use
  Company Number: BR-SANOFI-AVENTIS-2012SA049987

PATIENT
  Age: 78 Year
  Sex: Male
  Weight: 78 kg

DRUGS (4)
  1. ZOLPIDEM TARTRATE [Suspect]
     Indication: INSOMNIA
     Dosage: DOSE: 1 TABLET AT NIGHT (HALF TABLET ADDITIONALLY IF HE DID NOT SLEEP)
     Route: 048
  2. AAS INFANTIL [Concomitant]
     Indication: ANTICOAGULANT THERAPY
     Dosage: 1 TABLET DURING BREAKFAST
     Route: 048
  3. METFORMIN HYDROCHLORIDE [Concomitant]
     Dosage: DOSE: 1 TABLET DURING BREAKFAST AND 1TABLET AT NIGHT
     Route: 048
  4. GLIMEPIRIDE [Concomitant]
     Dosage: 1 TABLET DURING BREAKFAST.
     Route: 048

REACTIONS (4)
  - VITREOUS FLOATERS [None]
  - RETINAL INJURY [None]
  - DIPLOPIA [None]
  - VISUAL IMPAIRMENT [None]
